FAERS Safety Report 8370767-9 (Version None)
Quarter: 2012Q2

REPORT INFORMATION
  Report Type: 
  Country: None (occurrence: None)
  Receive Date: 20120518
  Receipt Date: 20120316
  Transmission Date: 20120825
  Serious: No
  Sender: FDA-Public Use
  Company Number: US-ALEXION-A201200500

PATIENT
  Sex: Female

DRUGS (2)
  1. SOLIRIS [Suspect]
     Dosage: UNK
     Route: 042
  2. ZITHROMAX [Suspect]
     Indication: NASOPHARYNGITIS
     Dosage: UNK
     Dates: start: 20120301

REACTIONS (2)
  - NASOPHARYNGITIS [None]
  - DRUG INEFFECTIVE [None]
